FAERS Safety Report 6610955-2 (Version None)
Quarter: 2010Q1

REPORT INFORMATION
  Report Type: 
  Country: None (occurrence: None)
  Receive Date: 20100222
  Receipt Date: 20100205
  Transmission Date: 20100710
  Serious: Yes (Other)
  Sender: FDA-Public Use
  Company Number: 2010BI004677

PATIENT
  Age: 62 Year
  Sex: Male

DRUGS (13)
  1. ZEVALIN [Suspect]
     Indication: MULTIPLE SCLEROSIS
     Dosage: 766 MBQ;1X;IV
     Route: 042
     Dates: start: 20090408, end: 20090415
  2. CALONAL [Concomitant]
  3. RITUXIMAB [Concomitant]
  4. CHLOR-TRIMETON [Concomitant]
  5. BAKTAR [Concomitant]
  6. ITRIZOLE [Concomitant]
  7. CRAVIT [Concomitant]
  8. METHYLCOBAL [Concomitant]
  9. RITUXIMAB [Concomitant]
  10. CYCLOPHOSPHAMIDE [Concomitant]
  11. DOXROBUICIN HYDROCHLORIDE [Concomitant]
  12. VINCRISTINE SULFATE [Concomitant]
  13. PREDNISOLONE [Concomitant]

REACTIONS (1)
  - BONE MARROW FAILURE [None]
